FAERS Safety Report 10174948 (Version 2)
Quarter: 2014Q2

REPORT INFORMATION
  Report Type: Report from Study
  Country: US (occurrence: US)
  Receive Date: 20140515
  Receipt Date: 20140522
  Transmission Date: 20141212
  Serious: Yes (Hospitalization, Other)
  Sender: FDA-Public Use
  Company Number: US-IAC KOREA XML-USA-2014-0113793

PATIENT
  Age: 53 Year
  Sex: Female

DRUGS (3)
  1. OXY CR TAB [Suspect]
     Indication: FIBROMYALGIA
     Dosage: UNK UNK,
     Route: 048
     Dates: start: 20110503
  2. OXY CR TAB [Suspect]
     Indication: ARTHRITIS
     Dosage: 40 MG, Q8H
     Route: 048
     Dates: start: 20131220
  3. OXY CR TAB [Suspect]
     Indication: NEUROPATHY PERIPHERAL
     Dosage: 40 MG, Q8H
     Route: 048
     Dates: start: 201404

REACTIONS (10)
  - Renal failure [Unknown]
  - Septic shock [Unknown]
  - Postoperative wound complication [Unknown]
  - Loss of consciousness [Unknown]
  - Lipectomy [Unknown]
  - Weight decreased [Unknown]
  - Neuropathy peripheral [Unknown]
  - Neuralgia [Unknown]
  - Ulcer haemorrhage [Unknown]
  - Amnesia [Unknown]
